FAERS Safety Report 9110577 (Version 1)
Quarter: 2013Q1

REPORT INFORMATION
  Report Type: Spontaneous
  Country: US (occurrence: US)
  Receive Date: 20130219
  Receipt Date: 20130219
  Transmission Date: 20140127
  Serious: No
  Sender: FDA-Public Use
  Company Number: US-BRISTOL-MYERS SQUIBB COMPANY-16932550

PATIENT
  Age: 70 Year
  Sex: Female
  Weight: 79.36 kg

DRUGS (1)
  1. ORENCIA [Suspect]
     Indication: RHEUMATOID ARTHRITIS
     Dosage: LAST INFUSION WAS ON 04SEP2012
     Route: 042
     Dates: start: 201202

REACTIONS (3)
  - Arthralgia [Unknown]
  - Fatigue [Unknown]
  - Hyperhidrosis [Unknown]
